FAERS Safety Report 10018189 (Version 1)
Quarter: 2014Q1

REPORT INFORMATION
  Report Type: Spontaneous
  Country: US (occurrence: US)
  Receive Date: 20140318
  Receipt Date: 20140318
  Transmission Date: 20141002
  Serious: Yes (Other)
  Sender: FDA-Public Use
  Company Number: US-BRISTOL-MYERS SQUIBB COMPANY-19184613

PATIENT
  Age: 64 Year
  Sex: Female
  Weight: 40.7 kg

DRUGS (13)
  1. ERBITUX [Suspect]
     Dosage: 1DF: APPROXIMATELY 45-50MG OUT OF A 550MG.
     Dates: start: 20130807
  2. ACETAMINOPHEN [Concomitant]
  3. CLINDAMYCIN [Concomitant]
     Route: 061
  4. BENADRYL [Concomitant]
  5. MAGNESIUM [Concomitant]
  6. MAGIC MOUTHWASH [Concomitant]
  7. MULTIVITAMIN [Concomitant]
  8. NICOTINE [Concomitant]
     Dosage: NICOTINE PATCH
  9. ZOFRAN [Concomitant]
  10. VITAMIN B6 [Concomitant]
  11. THIAMIN [Concomitant]
  12. MIRTAZAPINE [Concomitant]
  13. COMPAZINE [Concomitant]

REACTIONS (2)
  - Flushing [Unknown]
  - Dyspnoea [Unknown]
